FAERS Safety Report 8980144 (Version 1)
Quarter: 2012Q4

REPORT INFORMATION
  Report Type: 
  Country: US (occurrence: US)
  Receive Date: 20121221
  Receipt Date: 20121221
  Transmission Date: 20130627
  Serious: Yes (Other)
  Sender: FDA-Public Use
  Company Number: US-BAYER-2012-133457

PATIENT
  Age: 45 Year
  Sex: Female

DRUGS (1)
  1. ALEVE CAPLET/TABLET,MIDOL EXTENDED RELIEF CAPLET [Suspect]
     Indication: TOOTHACHE
     Dosage: 2 DF, other frequency
     Dates: start: 20121211

REACTIONS (2)
  - Intentional overdose [None]
  - Abdominal pain upper [Not Recovered/Not Resolved]
